FAERS Safety Report 7252084-3 (Version None)
Quarter: 2011Q1

REPORT INFORMATION
  Report Type: 
  Country: None (occurrence: None)
  Receive Date: 20110128
  Receipt Date: 20100429
  Transmission Date: 20110831
  Serious: Yes (Other)
  Sender: FDA-Public Use
  Company Number: US-ABBOTT-10P-163-0641779-00

PATIENT
  Sex: Female
  Weight: 68.1 kg

DRUGS (10)
  1. HUMIRA [Suspect]
     Dates: start: 20090101, end: 20090101
  2. HUMIRA [Suspect]
     Indication: RHEUMATOID ARTHRITIS
     Dates: start: 20070101, end: 20090101
  3. HUMIRA [Suspect]
     Indication: RHEUMATOID ARTHRITIS
     Dates: start: 20090101, end: 20090101
  4. PREVACID [Concomitant]
     Indication: GASTROOESOPHAGEAL REFLUX DISEASE
  5. TYLENOL-500 [Concomitant]
     Indication: HEADACHE
  6. CARAFATE [Concomitant]
     Indication: GASTROOESOPHAGEAL REFLUX DISEASE
  7. HUMIRA [Suspect]
  8. HUMIRA [Suspect]
     Dates: start: 20100301
  9. PENTASA [Concomitant]
     Indication: CROHN'S DISEASE
  10. HUMIRA [Suspect]
     Indication: CROHN'S DISEASE
     Dates: start: 20070101, end: 20090101

REACTIONS (3)
  - LYMPHADENOPATHY [None]
  - RHEUMATOID ARTHRITIS [None]
  - SQUAMOUS CELL CARCINOMA OF SKIN [None]
